FAERS Safety Report 8504857-4 (Version None)
Quarter: 2012Q3

REPORT INFORMATION
  Report Type: 
  Country: None (occurrence: None)
  Receive Date: 20120712
  Receipt Date: 20120704
  Transmission Date: 20120928
  Serious: Yes (Hospitalization)
  Sender: FDA-Public Use
  Company Number: JP-MSD-1207JPN000555

PATIENT

DRUGS (11)
  1. PEG-INTRON [Suspect]
     Indication: HEPATITIS C
     Dosage: 1.5 MICROGRAM PER KILOGRAM, QW
     Route: 058
     Dates: start: 20120509
  2. REBETOL [Suspect]
     Dosage: 200 MG, QOD
     Route: 048
     Dates: start: 20120613
  3. TELAPREVIR [Suspect]
     Indication: HEPATITIS C
     Dosage: 1500 MG, QD
     Dates: start: 20120509
  4. MICARDIS [Concomitant]
     Dosage: UNK
     Route: 048
  5. NORVASC [Concomitant]
     Dosage: UNK
     Route: 048
  6. ZOLPIDEM [Concomitant]
     Dosage: UNK
     Route: 048
  7. ESTAZOLAM [Concomitant]
     Dosage: UNK
     Route: 048
  8. REBETOL [Suspect]
     Indication: HEPATITIS C
     Dosage: 400 MG, QD
     Route: 048
     Dates: start: 20120509, end: 20120520
  9. TAMSULOSIN HCL [Concomitant]
     Dosage: UNK
     Route: 048
  10. REBETOL [Suspect]
     Dosage: 200 MG, QD
     Route: 048
     Dates: start: 20120521, end: 20120612
  11. FAMOTIDINE [Concomitant]
     Dosage: UNK
     Route: 048

REACTIONS (1)
  - RENAL IMPAIRMENT [None]
